FAERS Safety Report 11143786 (Version 1)
Quarter: 2015Q2

REPORT INFORMATION
  Report Type: Spontaneous
  Country: FR (occurrence: FR)
  Receive Date: 20150528
  Receipt Date: 20150528
  Transmission Date: 20150821
  Serious: Yes (Other)
  Sender: FDA-Public Use
  Company Number: FR-009507513-1505FRA010358

PATIENT
  Age: 29 Year
  Sex: Male

DRUGS (1)
  1. GRAZAX [Suspect]
     Active Substance: PHLEUM PRATENSE POLLEN
     Indication: RHINITIS ALLERGIC
     Dosage: 75000 SQ-T, DAILY
     Route: 060
     Dates: start: 201105

REACTIONS (1)
  - Salivary gland disorder [Not Recovered/Not Resolved]

NARRATIVE: CASE EVENT DATE: 201105
